FAERS Safety Report 18871326 (Version 1)
Quarter: 2021Q1

REPORT INFORMATION
  Report Type: Spontaneous
  Country: US (occurrence: US)
  Receive Date: 20210209
  Receipt Date: 20210209
  Transmission Date: 20210420
  Serious: Yes (Other)
  Sender: FDA-Public Use
  Company Number: None

PATIENT
  Age: 76 Year
  Sex: Female
  Weight: 67.5 kg

DRUGS (1)
  1. BAMLANIVIMAB INFUSION [Suspect]
     Active Substance: BAMLANIVIMAB
     Indication: COVID-19
     Dosage: ?          OTHER FREQUENCY:60 MINUTE INFUSION;?
     Route: 042
     Dates: start: 20210206, end: 20210206

REACTIONS (4)
  - Nausea [None]
  - Vomiting [None]
  - COVID-19 [None]
  - Fatigue [None]

NARRATIVE: CASE EVENT DATE: 20210206
